FAERS Safety Report 6617066-0 (Version None)
Quarter: 2010Q1

REPORT INFORMATION
  Report Type: 
  Country: None (occurrence: None)
  Receive Date: 20100307
  Receipt Date: 20100222
  Transmission Date: 20100710
  Serious: Yes (Other)
  Sender: FDA-Public Use
  Company Number: ES-ELI_LILLY_AND_COMPANY-ES201002006820

PATIENT
  Age: 6 Year
  Sex: Male

DRUGS (6)
  1. STRATTERA [Suspect]
     Indication: ATTENTION DEFICIT/HYPERACTIVITY DISORDER
     Dosage: 18 MG, UNKNOWN
     Route: 048
     Dates: start: 20100119, end: 20100125
  2. STRATTERA [Suspect]
     Dosage: 25 MG, UNKNOWN
     Route: 048
     Dates: start: 20100126
  3. RISPERDAL [Concomitant]
     Dosage: 0.5 MG, EACH MORNING
     Route: 048
  4. RISPERDAL [Concomitant]
     Dosage: 0.25 MG, EACH AFTERNOON
     Route: 048
  5. RISPERDAL [Concomitant]
     Dosage: 0.2 MG, EACH EVENING
     Route: 048
  6. RISPERDAL [Concomitant]
     Dosage: 0.5 MG, EACH MORNING
     Route: 048

REACTIONS (2)
  - ARRHYTHMIA [None]
  - ATRIOVENTRICULAR BLOCK [None]
